FAERS Safety Report 8433405-2 (Version None)
Quarter: 2012Q2

REPORT INFORMATION
  Report Type: 
  Country: None (occurrence: None)
  Receive Date: 20120613
  Receipt Date: 20120608
  Transmission Date: 20120825
  Serious: Yes (Hospitalization)
  Sender: FDA-Public Use
  Company Number: GB-MERCK-1206USA01536

PATIENT
  Age: 80 Year
  Sex: Male
  Weight: 70 kg

DRUGS (6)
  1. CILOSTAZOL [Concomitant]
     Indication: POOR PERIPHERAL CIRCULATION
     Route: 048
     Dates: start: 20120510
  2. FLOXACILLIN [Concomitant]
     Indication: LOCALISED INFECTION
     Dosage: 4 TIMES / 1 DAY
     Route: 048
     Dates: start: 20120413, end: 20120513
  3. NICORANDIL [Concomitant]
     Indication: ANGINA PECTORIS
     Route: 048
     Dates: start: 20120401
  4. ZOCOR [Suspect]
     Indication: BLOOD CHOLESTEROL INCREASED
     Route: 048
     Dates: start: 20120220, end: 20120513
  5. FUSIDIC ACID [Suspect]
     Indication: LOCALISED INFECTION
     Route: 048
     Dates: start: 20120413, end: 20120513
  6. OMEPRAZOLE [Concomitant]
     Indication: GASTROOESOPHAGEAL REFLUX DISEASE
     Route: 048
     Dates: start: 20120220

REACTIONS (5)
  - RHABDOMYOLYSIS [None]
  - PAIN IN EXTREMITY [None]
  - DRUG INTERACTION [None]
  - BLOOD CREATINE PHOSPHOKINASE INCREASED [None]
  - ASTHENIA [None]
